FAERS Safety Report 8875934 (Version 1)
Quarter: 2012Q4

REPORT INFORMATION
  Report Type: 
  Country: IT (occurrence: IT)
  Receive Date: 20121023
  Receipt Date: 20121023
  Transmission Date: 20130627
  Serious: Yes (Other)
  Sender: FDA-Public Use
  Company Number: IT-VIIV HEALTHCARE LIMITED-B0838593A

PATIENT
  Age: 45 Year
  Sex: Female

DRUGS (3)
  1. KIVEXA [Suspect]
     Indication: ANTIRETROVIRAL THERAPY
     Route: 048
     Dates: start: 20120604, end: 20120926
  2. VIRAMUNE [Suspect]
     Indication: ANTIRETROVIRAL THERAPY
     Dosage: 400MG per day
     Route: 048
     Dates: start: 20041209, end: 20120926
  3. CRESTOR [Concomitant]
     Indication: PRODUCT USED FOR UNKNOWN INDICATION
     Dosage: 10MG per day
     Route: 048

REACTIONS (1)
  - Transaminases increased [Recovering/Resolving]
